FAERS Safety Report 11180548 (Version 1)
Quarter: 2015Q2

REPORT INFORMATION
  Report Type: Spontaneous
  Country: ME (occurrence: ME)
  Receive Date: 20150611
  Receipt Date: 20150611
  Transmission Date: 20150821
  Serious: Yes (Other)
  Sender: FDA-Public Use
  Company Number: ME-SA-2015SA079997

PATIENT
  Age: 24 Year
  Sex: Male
  Weight: 64 kg

DRUGS (33)
  1. PARACETAMOL [Concomitant]
     Active Substance: ACETAMINOPHEN
     Indication: PREMEDICATION
     Dosage: INFUSION SOLUTION?DOSE: 1 BOTTLE.
     Route: 042
     Dates: start: 20150215, end: 20150215
  2. CLEXANE [Concomitant]
     Active Substance: ENOXAPARIN SODIUM
     Indication: THROMBOSIS PROPHYLAXIS
     Dosage: SYRINGE, 4000 I.U. ANTI XA/0,4 ML
     Route: 058
     Dates: start: 20150214, end: 20150219
  3. DIFLUCAN [Concomitant]
     Active Substance: FLUCONAZOLE
     Indication: ANTIFUNGAL PROPHYLAXIS
     Route: 042
     Dates: start: 20150215, end: 20150219
  4. ATROPINE [Concomitant]
     Active Substance: ATROPINE
     Dosage: INDICATION: DECURARIZATION?1MG/ML
     Route: 042
     Dates: start: 20150215, end: 20150215
  5. PROGRAF [Concomitant]
     Active Substance: TACROLIMUS\TACROLIMUS ANHYDROUS
     Indication: IMMUNOSUPPRESSANT DRUG THERAPY
     Dosage: 3MG +3,4 MG (TOTAL AMOUNT 6,5 MG DAILY)?1 MG
     Route: 048
     Dates: start: 20150213
  6. PRESOLOL [Concomitant]
     Indication: BLOOD PRESSURE ABNORMAL
     Dosage: 1 + 1,5?STRENGTH: 5MG/ML?CORRECTION TENSION DURING OPERATION
     Route: 042
     Dates: start: 20150215, end: 20150215
  7. OHB12 [Concomitant]
     Indication: ANAEMIA
     Dosage: 2500MG/2ML
     Route: 042
     Dates: start: 20150215, end: 20150215
  8. TRAMADOL [Concomitant]
     Active Substance: TRAMADOL
     Indication: PAIN MANAGEMENT
     Route: 042
     Dates: start: 20150215, end: 20150215
  9. SEVORANE [Concomitant]
     Active Substance: SEVOFLURANE
     Indication: ANAESTHESIA
     Dosage: INHALATION SOLUTION?INHALATION
     Dates: start: 20150215, end: 20150215
  10. FENTANYL. [Concomitant]
     Active Substance: FENTANYL
     Indication: GENERAL ANAESTHESIA
     Route: 042
     Dates: start: 20150215, end: 20150215
  11. ESMERON [Concomitant]
     Active Substance: ROCURONIUM BROMIDE
     Indication: MUSCLE RELAXANT THERAPY
     Route: 042
     Dates: start: 20150215, end: 20150215
  12. FUROSEMID [Concomitant]
     Active Substance: FUROSEMIDE
     Indication: DIURETIC THERAPY
     Dosage: 20 MG/ML
     Route: 042
     Dates: start: 20150215, end: 20150217
  13. PRESOLOL [Concomitant]
     Indication: BLOOD PRESSURE ABNORMAL
     Route: 048
     Dates: start: 20150209
  14. GLUCOSE [Concomitant]
     Active Substance: DEXTROSE
     Indication: FLUID REPLACEMENT
     Dosage: INFUNDIBLE 5%
     Route: 042
     Dates: start: 20150215, end: 20150223
  15. CELLCEPT [Concomitant]
     Active Substance: MYCOPHENOLATE MOFETIL\MYCOPHENOLATE MOFETIL HYDROCHLORIDE
     Indication: IMMUNOSUPPRESSANT DRUG THERAPY
     Route: 048
     Dates: start: 20150213
  16. EDICIN [Concomitant]
     Active Substance: VANCOMYCIN HYDROCHLORIDE
     Indication: ANTIBIOTIC THERAPY
     Dosage: 500 MG
     Route: 042
     Dates: start: 20150215, end: 20150215
  17. ANALGIN [Concomitant]
     Active Substance: METAMIZOLE SODIUM
     Indication: PAIN MANAGEMENT
     Dosage: 2.5MG/5ML
     Route: 042
     Dates: start: 20150215, end: 20150215
  18. MIDAZOLAM [Concomitant]
     Active Substance: MIDAZOLAM\MIDAZOLAM HYDROCHLORIDE
     Indication: GENERAL ANAESTHESIA
     Dosage: 15 MG/3ML
     Route: 042
     Dates: start: 20150215, end: 20150215
  19. DIPRIVAN [Concomitant]
     Active Substance: PROPOFOL
     Indication: GENERAL ANAESTHESIA
     Dosage: INJECTION OR INFUSION EMULSION, 10MG/ML
     Route: 042
     Dates: start: 20150215, end: 20150215
  20. NEOSTIGMINE [Concomitant]
     Active Substance: NEOSTIGMINE
     Dosage: INDICATION: DECURARIZATION?05 MG/ML
     Route: 042
     Dates: start: 20150215, end: 20150215
  21. TAZOBACTAM/PIPERACILLIN [Concomitant]
     Indication: ANTIBIOTIC PROPHYLAXIS
     Dosage: 4 GM +0,5 GM
     Route: 042
     Dates: start: 20150215, end: 20150215
  22. MEROPENEM. [Concomitant]
     Active Substance: MEROPENEM
     Indication: ANTIBIOTIC THERAPY
     Route: 042
     Dates: start: 20150215, end: 20150215
  23. FOLACIN [Concomitant]
     Active Substance: FOLIC ACID
     Dosage: CORRECTION ICHEMICAL STATUS
     Route: 048
     Dates: start: 20150215, end: 20150216
  24. SODIUM CHLORIDE. [Concomitant]
     Active Substance: SODIUM CHLORIDE
     Indication: FLUID REPLACEMENT
     Route: 042
     Dates: start: 20150215, end: 20150223
  25. EBRANTIL [Concomitant]
     Active Substance: URAPIDIL
     Dosage: CORRECTION TENSION DURING OPERATION?INJECTION/INFUSION SOLUTION, 50MG/10ML
     Route: 042
     Dates: start: 20150215, end: 20150215
  26. KLOMETOL [Concomitant]
     Indication: PROPHYLAXIS OF NAUSEA AND VOMITING
     Dosage: 10MG/2ML
     Route: 042
     Dates: start: 20150215, end: 20150215
  27. LEMOD SOLU [Concomitant]
     Indication: PREMEDICATION
     Dosage: DOSE: 500 MG I.V. IN 500 ML 5 % DEXTROSE?FORM: POWDER AND SOLUTION FOR POWDER
     Route: 042
     Dates: start: 20150215, end: 20150215
  28. HEXORAL [Concomitant]
     Indication: ORAL INFECTION
     Dosage: LOCAL MOUTH WASH
     Dates: start: 20150215, end: 20150224
  29. THYMOGLOBULIN [Suspect]
     Active Substance: LAPINE T-LYMPHOCYTE IMMUNE GLOBULIN
     Indication: IMMUNE TOLERANCE INDUCTION
     Dosage: DOSE: 4 AM
     Route: 042
     Dates: start: 20150215, end: 20150215
  30. SYNOPEN [Concomitant]
     Indication: PREMEDICATION
     Dosage: 1 AMPULE
     Route: 042
     Dates: start: 20150215, end: 20150215
  31. MANNITOL. [Concomitant]
     Active Substance: MANNITOL
     Indication: POLYURIA
     Route: 042
     Dates: start: 20150215, end: 20150215
  32. JONOLACTAT [Concomitant]
     Indication: FLUID REPLACEMENT
     Route: 042
     Dates: start: 20150215, end: 20150215
  33. SOLU-CORTEF [Concomitant]
     Active Substance: HYDROCORTISONE SODIUM SUCCINATE
     Indication: IMMUNOSUPPRESSANT DRUG THERAPY
     Dosage: POWDER FOR SOLUTION, 100 MG
     Route: 042
     Dates: start: 20150215, end: 20150216

REACTIONS (2)
  - Leukopenia [Recovered/Resolved]
  - Agranulocytosis [Recovered/Resolved]

NARRATIVE: CASE EVENT DATE: 20150215
